FAERS Safety Report 17100958 (Version 1)
Quarter: 2019Q4

REPORT INFORMATION
  Report Type: Spontaneous
  Country: US (occurrence: US)
  Receive Date: 20191202
  Receipt Date: 20191202
  Transmission Date: 20200122
  Serious: No
  Sender: FDA-Public Use
  Company Number: US-SA-2019SA326648

PATIENT
  Age: 9 Year
  Sex: Male

DRUGS (1)
  1. ALLEGRA [Suspect]
     Active Substance: FEXOFENADINE HYDROCHLORIDE
     Indication: SNEEZING
     Dosage: 5 ML, QD
     Route: 048

REACTIONS (2)
  - Drug ineffective [Unknown]
  - Sneezing [Unknown]
